FAERS Safety Report 5527796-X (Version None)
Quarter: 2007Q4

REPORT INFORMATION
  Report Type: 
  Country: None (occurrence: None)
  Receive Date: 20071123
  Receipt Date: 20071112
  Transmission Date: 20080405
  Serious: Yes (Life-Threatening, Hospitalization)
  Sender: FDA-Public Use
  Company Number: 20074272

PATIENT
  Sex: Female

DRUGS (6)
  1. LIORESAL [Suspect]
     Indication: MUSCLE SPASTICITY
     Dosage: MCG, DAILY, INTRATHECAL
     Route: 037
  2. BENZODIAZEPINES [Concomitant]
  3. OPIATES [Concomitant]
  4. ANTIBIOTICS [Concomitant]
  5. ENTERAL BACLOFEN [Concomitant]
  6. CLONIDINE [Concomitant]

REACTIONS (19)
  - AGITATION [None]
  - CLONUS [None]
  - CONDITION AGGRAVATED [None]
  - DEVICE RELATED INFECTION [None]
  - DRUG WITHDRAWAL SYNDROME [None]
  - FLUID RETENTION [None]
  - FOREIGN BODY TRAUMA [None]
  - HAEMODYNAMIC INSTABILITY [None]
  - HYPERHIDROSIS [None]
  - HYPERTONIA [None]
  - INCISION SITE ERYTHEMA [None]
  - MENINGITIS [None]
  - MUSCLE SPASTICITY [None]
  - POSTURING [None]
  - PSEUDOMONAS INFECTION [None]
  - PYREXIA [None]
  - SALIVARY HYPERSECRETION [None]
  - TACHYCARDIA [None]
  - TREMOR [None]
